FAERS Safety Report 26018849 (Version 1)
Quarter: 2025Q4

REPORT INFORMATION
  Report Type: Other
  Country: GB (occurrence: GB)
  Receive Date: 20251110
  Receipt Date: 20251110
  Transmission Date: 20260117
  Serious: Yes (Other)
  Sender: ANI
  Company Number: GB-ANIPHARMA-031086

PATIENT
  Age: 39 Year
  Sex: Female

DRUGS (1)
  1. TRANEXAMIC ACID [Suspect]
     Active Substance: TRANEXAMIC ACID
     Indication: Heavy menstrual bleeding

REACTIONS (2)
  - Seizure [Recovering/Resolving]
  - Cerebral venous sinus thrombosis [Unknown]
